FAERS Safety Report 8020202-5 (Version None)
Quarter: 2012Q1

REPORT INFORMATION
  Report Type: 
  Country: None (occurrence: None)
  Receive Date: 20120103
  Receipt Date: 20111220
  Transmission Date: 20120608
  Serious: Yes (Hospitalization)
  Sender: FDA-Public Use
  Company Number: DE-EISAI INC-E2090-01928-SPO-DE

PATIENT
  Age: 49 Year
  Sex: Male
  Weight: 64 kg

DRUGS (4)
  1. ZONEGRAN [Suspect]
     Dosage: 500 MG
     Route: 048
     Dates: end: 20080929
  2. VIMPAT [Concomitant]
     Dosage: 100 MG
     Route: 048
     Dates: start: 20080909
  3. ERGOCALCIFEROL [Concomitant]
     Dosage: 1000 IU
  4. LAMICTAL [Concomitant]
     Dosage: 650 MG
     Route: 048

REACTIONS (1)
  - HYPOKALAEMIA [None]
